FAERS Safety Report 20940540 (Version 2)
Quarter: 2022Q2

REPORT INFORMATION
  Report Type: Spontaneous
  Country: US (occurrence: US)
  Receive Date: 20220609
  Receipt Date: 20220625
  Transmission Date: 20220721
  Serious: Yes (Other)
  Sender: FDA-Public Use
  Company Number: US-TEVA-2022-US-2043636

PATIENT
  Age: 4 Month
  Sex: Female

DRUGS (21)
  1. DAUNORUBICIN [Suspect]
     Active Substance: DAUNORUBICIN
     Indication: T-cell type acute leukaemia
     Dosage: INDUCTION THERAPY AS PER CHILDREN^S ONCOLOGY GROUP PROTOCOL AALL0631 [CYTARABINE, DAUNORUBIC...
     Route: 065
     Dates: start: 202010
  2. DAUNORUBICIN [Suspect]
     Active Substance: DAUNORUBICIN
     Dosage: INDUCTION INTENSIFICATION THERAPY AS PER CHILDREN^S ONCOLOGY GROUP PROTOCOL AALL0631 [CYTARA...
     Route: 065
     Dates: start: 202011
  3. DEXAMETHASONE [Suspect]
     Active Substance: DEXAMETHASONE
     Indication: T-cell type acute leukaemia
     Dosage: INDUCTION THERAPY AS PER CHILDREN^S ONCOLOGY GROUP PROTOCOL AALL0631 [CYTARABINE, DAUNORUBIC...
     Route: 065
     Dates: start: 202010
  4. DEXAMETHASONE [Suspect]
     Active Substance: DEXAMETHASONE
     Dosage: INDUCTION INTENSIFICATION THERAPY AS PER CHILDREN^S ONCOLOGY GROUP PROTOCOL AALL0631 [CYTARA...
     Route: 065
     Dates: start: 202011
  5. ETOPOSIDE [Suspect]
     Active Substance: ETOPOSIDE
     Indication: T-cell type acute leukaemia
     Route: 065
     Dates: start: 202011
  6. METHOTREXATE [Suspect]
     Active Substance: METHOTREXATE
     Indication: T-cell type acute leukaemia
     Dosage: HIGH DOSE
     Route: 065
     Dates: start: 202011
  7. PREDNISOLONE [Suspect]
     Active Substance: PREDNISOLONE
     Indication: T-cell type acute leukaemia
     Dosage: INDUCTION THERAPY AS PER CHILDREN^S ONCOLOGY GROUP PROTOCOL AALL0631 [CYTARABINE, DAUNORUBIC...
     Route: 065
     Dates: start: 202010
  8. PREDNISOLONE [Suspect]
     Active Substance: PREDNISOLONE
     Dosage: INDUCTION INTENSIFICATION THERAPY AS PER CHILDREN^S ONCOLOGY GROUP PROTOCOL AALL0631 [CYTARA...
     Route: 065
     Dates: start: 202011
  9. VINCRISTINE [Suspect]
     Active Substance: VINCRISTINE
     Indication: T-cell type acute leukaemia
     Dosage: INDUCTION THERAPY AS PER CHILDREN^S ONCOLOGY GROUP PROTOCOL AALL0631 [CYTARABINE, DAUNORUBIC...
     Route: 065
     Dates: start: 202010
  10. VINCRISTINE [Suspect]
     Active Substance: VINCRISTINE
     Dosage: INDUCTION INTENSIFICATION THERAPY AS PER CHILDREN^S ONCOLOGY GROUP PROTOCOL AALL0631 [CYTARA...
     Route: 065
     Dates: start: 202011
  11. CYTARABINE [Suspect]
     Active Substance: CYTARABINE
     Indication: T-cell type acute leukaemia
     Dosage: INDUCTION THERAPY AS PER CHILDREN^S ONCOLOGY GROUP PROTOCOL AALL0631 [CYTARABINE, DAUNORUBIC...
     Route: 065
     Dates: start: 202010
  12. CYTARABINE [Suspect]
     Active Substance: CYTARABINE
     Dosage: INDUCTION INTENSIFICATION THERAPY AS PER CHILDREN^S ONCOLOGY GROUP PROTOCOL AALL0631 [CYTARA...
     Route: 065
     Dates: start: 202011
  13. PEGASPARGASE [Suspect]
     Active Substance: PEGASPARGASE
     Indication: T-cell type acute leukaemia
     Dosage: INDUCTION THERAPY AS PER CHILDREN^S ONCOLOGY GROUP PROTOCOL AALL0631 [CYTARABINE, DAUNORUBIC...
     Route: 065
     Dates: start: 202010
  14. PEGASPARGASE [Suspect]
     Active Substance: PEGASPARGASE
     Dosage: INDUCTION INTENSIFICATION THERAPY AS PER CHILDREN^S ONCOLOGY GROUP PROTOCOL AALL0631 [CYTARA...
     Route: 065
     Dates: start: 202011
  15. CYTARABINE [Suspect]
     Active Substance: CYTARABINE
     Indication: T-cell type acute leukaemia
     Dosage: INDUCTION THERAPY AS PER CHILDREN^S ONCOLOGY GROUP PROTOCOL AALL0631 ALONG WITH TRIPLE IT RE...
     Route: 037
     Dates: start: 202010
  16. CYTARABINE [Suspect]
     Active Substance: CYTARABINE
     Dosage: INDUCTION THERAPY AS PER CHILDREN^S ONCOLOGY GROUP PROTOCOL AALL0631 ALONG WITH TRIPLE IT RE...
     Route: 037
     Dates: start: 202011
  17. HYDROCORTISONE [Suspect]
     Active Substance: HYDROCORTISONE
     Indication: T-cell type acute leukaemia
     Dosage: INDUCTION THERAPY AS PER CHILDREN^S ONCOLOGY GROUP PROTOCOL AALL0631 ALONG WITH TRIPLE IT RE...
     Route: 037
     Dates: start: 202010
  18. HYDROCORTISONE [Suspect]
     Active Substance: HYDROCORTISONE
     Dosage: INDUCTION THERAPY AS PER CHILDREN^S ONCOLOGY GROUP PROTOCOL AALL0631 ALONG WITH TRIPLE IT RE...
     Route: 037
     Dates: start: 202011
  19. CYCLOPHOSPHAMIDE [Suspect]
     Active Substance: CYCLOPHOSPHAMIDE
     Indication: T-cell type acute leukaemia
     Route: 065
     Dates: start: 202011
  20. METHOTREXATE [Suspect]
     Active Substance: METHOTREXATE
     Indication: T-cell type acute leukaemia
     Dosage: INDUCTION THERAPY AS PER CHILDREN^S ONCOLOGY GROUP PROTOCOL AALL0631 [CYTARABINE, DAUNORUBIC...
     Route: 037
     Dates: start: 202010
  21. METHOTREXATE [Suspect]
     Active Substance: METHOTREXATE
     Dosage: INDUCTION INTENSIFICATION THERAPY AS PER CHILDREN^S ONCOLOGY GROUP PROTOCOL AALL0631 [CYTARA...
     Route: 037
     Dates: start: 202011

REACTIONS (4)
  - Bacteraemia [Unknown]
  - Mucosal inflammation [Unknown]
  - Pyrexia [Unknown]
  - Neutropenia [Unknown]

NARRATIVE: CASE EVENT DATE: 20200101
